FAERS Safety Report 11613225 (Version 1)
Quarter: 2015Q4

REPORT INFORMATION
  Report Type: Spontaneous
  Country: US (occurrence: US)
  Receive Date: 20151008
  Receipt Date: 20151008
  Transmission Date: 20160304
  Serious: No
  Sender: FDA-Public Use
  Company Number: US-JNJFOC-20150909953

PATIENT
  Age: 24 Year
  Sex: Female
  Weight: 83.92 kg

DRUGS (2)
  1. SIMPONI [Suspect]
     Active Substance: GOLIMUMAB
     Indication: COLITIS ULCERATIVE
     Dosage: STRENGTH: 100MG
     Route: 058
     Dates: start: 2014
  2. LIALDA [Concomitant]
     Active Substance: MESALAMINE
     Indication: COLITIS ULCERATIVE
     Route: 048

REACTIONS (6)
  - Abdominal pain [Not Recovered/Not Resolved]
  - Accidental exposure to product [Unknown]
  - Underdose [Unknown]
  - Diarrhoea [Not Recovered/Not Resolved]
  - Device use error [Not Recovered/Not Resolved]
  - Inappropriate schedule of drug administration [Unknown]

NARRATIVE: CASE EVENT DATE: 201509
